FAERS Safety Report 13853066 (Version 1)
Quarter: 2017Q3

REPORT INFORMATION
  Report Type: Spontaneous
  Country: US (occurrence: US)
  Receive Date: 20170809
  Receipt Date: 20170809
  Transmission Date: 20171127
  Serious: No
  Sender: FDA-Public Use
  Company Number: None

PATIENT
  Sex: Female

DRUGS (1)
  1. TARCEVA [Suspect]
     Active Substance: ERLOTINIB HYDROCHLORIDE
     Indication: LUNG NEOPLASM MALIGNANT
     Dates: start: 20160316, end: 20170601

REACTIONS (9)
  - Rash [None]
  - Blister [None]
  - Acne [None]
  - Therapy change [None]
  - Pelvic pain [None]
  - Fatigue [None]
  - Pruritus [None]
  - Cough [None]
  - Toxicity to various agents [None]
